FAERS Safety Report 5704779-8 (Version None)
Quarter: 2008Q2

REPORT INFORMATION
  Report Type: 
  Country: None (occurrence: None)
  Receive Date: 20080410
  Receipt Date: 20080401
  Transmission Date: 20081010
  Serious: Yes (Hospitalization, Disabling)
  Sender: FDA-Public Use
  Company Number: 2008US000978

PATIENT
  Age: 72 Year
  Sex: Male

DRUGS (12)
  1. PROGRAF [Suspect]
     Indication: RENAL TRANSPLANT
     Dosage: 1 MG, BID, ORAL
     Route: 048
     Dates: start: 20060531, end: 20061113
  2. PROGRAF [Suspect]
     Indication: RENAL TRANSPLANT
     Dosage: 1 MG, BID, ORAL
     Route: 048
     Dates: start: 20051101
  3. METOPROLOL TARTRATE [Concomitant]
  4. LOVASTATIN [Concomitant]
  5. GLIPIZIDE [Concomitant]
  6. FOLIC ACID [Concomitant]
  7. ASPIRIN [Concomitant]
  8. INSULIN (INSULIN) [Concomitant]
  9. VORICONAZOLE (VORICONAZOLE) [Concomitant]
  10. LEFLUNOMIDE [Concomitant]
  11. EPOETIN NOS (EPOETIN NOS) [Concomitant]
  12. MICAFUNGIN [Concomitant]

REACTIONS (4)
  - ABASIA [None]
  - NEUROLOGICAL SYMPTOM [None]
  - OSTEOMYELITIS FUNGAL [None]
  - PAIN [None]
